FAERS Safety Report 19115664 (Version 1)
Quarter: 2021Q2

REPORT INFORMATION
  Report Type: Spontaneous
  Country: HR (occurrence: HR)
  Receive Date: 20210409
  Receipt Date: 20210409
  Transmission Date: 20210717
  Serious: Yes (Other)
  Sender: FDA-Public Use
  Company Number: HR-TEVA-2021-HR-1898826

PATIENT
  Age: 47 Year
  Sex: Female

DRUGS (4)
  1. LOSARTIC [Suspect]
     Active Substance: LOSARTAN POTASSIUM
     Dosage: 400 MG
     Route: 048
     Dates: start: 20210219, end: 20210219
  2. LACIPIL [Suspect]
     Active Substance: LACIDIPINE
     Dosage: 42 MG
     Route: 048
     Dates: start: 20210219, end: 20210219
  3. LOQUEN [Suspect]
     Active Substance: QUETIAPINE FUMARATE
     Dosage: 800 MG
     Route: 048
     Dates: start: 20210219, end: 20210219
  4. NORMABEL [Suspect]
     Active Substance: DIAZEPAM
     Dosage: 200 MG
     Route: 048
     Dates: start: 20210219, end: 20210219

REACTIONS (4)
  - Decreased interest [Unknown]
  - Intentional overdose [Unknown]
  - Suicide attempt [Unknown]
  - Slow response to stimuli [Unknown]

NARRATIVE: CASE EVENT DATE: 20210219
